FAERS Safety Report 20070130 (Version 3)
Quarter: 2021Q4

REPORT INFORMATION
  Report Type: Spontaneous
  Country: BE (occurrence: BE)
  Receive Date: 20211115
  Receipt Date: 20211216
  Transmission Date: 20220303
  Serious: Yes (Other)
  Sender: FDA-Public Use
  Company Number: BE-BAYER-2021A244256

PATIENT
  Age: 55 Year
  Sex: Female
  Weight: 69 kg

DRUGS (1)
  1. MIRENA [Suspect]
     Active Substance: LEVONORGESTREL
     Indication: Contraception
     Dosage: 20?G/DAY
     Route: 015
     Dates: start: 2012, end: 20210604

REACTIONS (4)
  - Device breakage [None]
  - Embedded device [Not Recovered/Not Resolved]
  - Complication of device removal [None]
  - Device use issue [None]

NARRATIVE: CASE EVENT DATE: 20210101
